FAERS Safety Report 7709074-3 (Version None)
Quarter: 2011Q3

REPORT INFORMATION
  Report Type: 
  Country: None (occurrence: None)
  Receive Date: 20110825
  Receipt Date: 20110816
  Transmission Date: 20111222
  Serious: Yes (Death, Other)
  Sender: FDA-Public Use
  Company Number: US-JNJFOC-20110810293

PATIENT
  Sex: Male
  Weight: 78.93 kg

DRUGS (9)
  1. QUETIAPINE [Suspect]
     Indication: PRODUCT USED FOR UNKNOWN INDICATION
     Route: 065
  2. BENZODIAZEPINES NOS [Concomitant]
     Route: 065
  3. DEPAKOTE [Concomitant]
     Route: 065
  4. HYDROXYZINE [Suspect]
     Indication: PRODUCT USED FOR UNKNOWN INDICATION
     Route: 065
  5. CAFFEINE [Concomitant]
     Route: 065
  6. NICOTINE [Concomitant]
     Route: 065
  7. FENTANYL [Suspect]
     Indication: BACK PAIN
     Route: 062
  8. PERCOCET [Suspect]
     Indication: PRODUCT USED FOR UNKNOWN INDICATION
     Route: 065
  9. CANNABIS [Concomitant]
     Route: 065

REACTIONS (4)
  - TOXICITY TO VARIOUS AGENTS [None]
  - WRONG TECHNIQUE IN DRUG USAGE PROCESS [None]
  - ANALGESIC DRUG LEVEL INCREASED [None]
  - COMPLETED SUICIDE [None]
